FAERS Safety Report 8449405-2 (Version None)
Quarter: 2012Q2

REPORT INFORMATION
  Report Type: 
  Country: None (occurrence: None)
  Receive Date: 20120619
  Receipt Date: 20120614
  Transmission Date: 20120825
  Serious: No
  Sender: FDA-Public Use
  Company Number: US-PFIZER INC-2012144337

PATIENT
  Sex: Female
  Weight: 80.726 kg

DRUGS (3)
  1. DICLOFENAC [Concomitant]
     Indication: PAIN
     Dosage: UNK
  2. EFFEXOR XR [Suspect]
     Indication: DEPRESSION
     Dosage: 150 MG, 1X/DAY
     Route: 048
     Dates: start: 20120201, end: 20120501
  3. VISTARIL [Concomitant]
     Indication: ANXIETY
     Dosage: 50 MG, UNK

REACTIONS (1)
  - WITHDRAWAL SYNDROME [None]
